FAERS Safety Report 23050569 (Version 2)
Quarter: 2023Q4

REPORT INFORMATION
  Report Type: Spontaneous
  Country: PT (occurrence: PT)
  Receive Date: 20231010
  Receipt Date: 20231019
  Transmission Date: 20240110
  Serious: Yes (Other)
  Sender: FDA-Public Use
  Company Number: None

PATIENT
  Age: 74 Year
  Sex: Male
  Weight: 91.5 kg

DRUGS (11)
  1. VELTASSA [Suspect]
     Active Substance: PATIROMER
     Indication: Hyperkalaemia
     Dosage: 1 SACHET/DAY
     Route: 048
     Dates: start: 20230801, end: 20230920
  2. JARDIANCE [Concomitant]
     Active Substance: EMPAGLIFLOZIN
     Dosage: 1 TABLET WITH BREAKFAST
     Route: 048
  3. PERINDOPRIL [Concomitant]
     Active Substance: PERINDOPRIL
     Dosage: 1 TABLET WITH BREAKFAST
     Route: 048
  4. BISOPROLOL [Concomitant]
     Active Substance: BISOPROLOL\BISOPROLOL FUMARATE
     Dosage: 1 TABLET WITH BREAKFAST + 1 TABLET WITH DINNER
     Route: 048
  5. FUROSEMIDE [Concomitant]
     Active Substance: FUROSEMIDE
     Route: 048
  6. LACTULOSE [Concomitant]
     Active Substance: LACTULOSE
     Dosage: AS NEEDED
     Route: 048
  7. ESTAZOLAM [Concomitant]
     Active Substance: ESTAZOLAM
     Dosage: HALF A TABLET AT BEDTIME
     Route: 048
  8. ATORVASTATIN [Concomitant]
     Active Substance: ATORVASTATIN
     Dosage: 1 TABLET WITH DINNER
     Route: 048
  9. ALLOPURINOL [Concomitant]
     Active Substance: ALLOPURINOL
     Dosage: 1 TABLET WITH LUNCH
     Route: 048
  10. ZOLPIDEM [Concomitant]
     Active Substance: ZOLPIDEM TARTRATE
     Dosage: 1 TABLET AT BEDTIME
     Route: 048
  11. XARELTO [Concomitant]
     Active Substance: RIVAROXABAN
     Dosage: 1 TABLET WITH LUNCH
     Route: 048

REACTIONS (2)
  - Metabolic acidosis [Recovering/Resolving]
  - Renal impairment [Recovering/Resolving]

NARRATIVE: CASE EVENT DATE: 20230901
